FAERS Safety Report 20690287 (Version 1)
Quarter: 2022Q2

REPORT INFORMATION
  Report Type: Spontaneous
  Country: US (occurrence: None)
  Receive Date: 20220407
  Receipt Date: 20220407
  Transmission Date: 20220721
  Serious: Yes (Disabling)
  Sender: FDA-Public Use
  Company Number: None

PATIENT
  Age: 27 Year
  Sex: Female
  Weight: 61.23 kg

DRUGS (1)
  1. PARAGARD T 380A [Suspect]
     Active Substance: COPPER
     Indication: Product used for unknown indication

REACTIONS (7)
  - Headache [None]
  - Head discomfort [None]
  - Nausea [None]
  - Photosensitivity reaction [None]
  - Hyperacusis [None]
  - Irritability [None]
  - Post procedural complication [None]

NARRATIVE: CASE EVENT DATE: 20220328
